FAERS Safety Report 11507787 (Version 1)
Quarter: 2015Q3

REPORT INFORMATION
  Report Type: Spontaneous
  Country: US (occurrence: US)
  Receive Date: 20150903
  Receipt Date: 20150903
  Transmission Date: 20151125
  Serious: No
  Sender: FDA-Public Use
  Company Number: US-ELI_LILLY_AND_COMPANY-US200909004778

PATIENT
  Sex: Female

DRUGS (9)
  1. MULTIPLE VITAMINS [Concomitant]
     Active Substance: VITAMINS
  2. POTASSIUM [Concomitant]
     Active Substance: POTASSIUM
  3. OXYCODONE [Concomitant]
     Active Substance: OXYCODONE
     Indication: PANCREATOLITHIASIS
  4. HUMALOG MIX50/50 [Suspect]
     Active Substance: INSULIN LISPRO
     Dates: start: 2007
  5. ASPIRIN. [Concomitant]
     Active Substance: ASPIRIN
  6. VITAMIN C [Concomitant]
     Active Substance: ASCORBIC ACID
  7. CALCIUM CARBONATE + VITAMIN D [Concomitant]
  8. HUMALOG MIX50/50 [Suspect]
     Active Substance: INSULIN LISPRO
     Dates: start: 2007
  9. FOSAMAX [Concomitant]
     Active Substance: ALENDRONATE SODIUM

REACTIONS (2)
  - Blood glucose increased [Not Recovered/Not Resolved]
  - Blood glucose decreased [Not Recovered/Not Resolved]

NARRATIVE: CASE EVENT DATE: 2008
